FAERS Safety Report 7323442-3 (Version None)
Quarter: 2011Q1

REPORT INFORMATION
  Report Type: 
  Country: None (occurrence: None)
  Receive Date: 20110201
  Receipt Date: 20101103
  Transmission Date: 20110831
  Serious: Yes (Other)
  Sender: FDA-Public Use
  Company Number: AMAG201000400

PATIENT
  Age: 59 Year
  Sex: Male
  Weight: 115.8 kg

DRUGS (1)
  1. FERAHEME [Suspect]
     Dosage: 510 MG, SINGLE, INTRAVENOUS
     Route: 042
     Dates: start: 20101103, end: 20101103

REACTIONS (4)
  - CHEST DISCOMFORT [None]
  - DYSPNOEA [None]
  - BLOOD PRESSURE DECREASED [None]
  - VOMITING [None]
